FAERS Safety Report 8608901 (Version 4)
Quarter: 2012Q4

REPORT INFORMATION
  Report Type: 
  Country: US (occurrence: US)
  Receive Date: 20120611
  Receipt Date: 20120925
  Transmission Date: 20130627
  Serious: Yes (Death, Hospitalization)
  Sender: FDA-Public Use
  Company Number: US-ACTELION-A-US2012-66579

PATIENT
  Age: 49 Year
  Sex: Female

DRUGS (7)
  1. TRACLEER [Suspect]
     Indication: PULMONARY ARTERIAL HYPERTENSION
     Dosage: UNK
     Route: 048
     Dates: start: 20100903
  2. TRACLEER [Suspect]
     Route: 048
  3. VELETRI [Suspect]
     Indication: PULMONARY ARTERIAL HYPERTENSION
     Dosage: 26 ng/kg, per min
     Route: 042
     Dates: start: 20120418
  4. VELETRI [Suspect]
     Dosage: 41 ng/kg, per min
     Route: 042
  5. VENTAVIS [Concomitant]
     Indication: PULMONARY ARTERIAL HYPERTENSION
     Dosage: UNK
     Route: 055
     Dates: start: 20110715, end: 20120427
  6. ASPIRIN [Concomitant]
  7. ADCIRCA [Concomitant]

REACTIONS (9)
  - Pulmonary hypertension [Fatal]
  - Pulmonary fibrosis [Fatal]
  - Respiratory failure [Fatal]
  - Intensive care [Unknown]
  - Catheterisation cardiac [Recovered/Resolved]
  - Central venous catheterisation [Recovered/Resolved]
  - Dyspnoea [Unknown]
  - Pyrexia [Recovered/Resolved]
  - Face oedema [Unknown]
